FAERS Safety Report 5776173-5 (Version None)
Quarter: 2008Q2

REPORT INFORMATION
  Report Type: 
  Country: None (occurrence: None)
  Receive Date: 20080613
  Receipt Date: 20080530
  Transmission Date: 20081010
  Serious: Yes (Other)
  Sender: FDA-Public Use
  Company Number: 2008001267

PATIENT
  Age: 69 Year
  Sex: Female

DRUGS (5)
  1. TARCEVA [Suspect]
     Indication: NON-SMALL CELL LUNG CANCER
     Dosage: (100 MG, QD) , ORAL
     Route: 048
     Dates: start: 20070801, end: 20070824
  2. BEVACIZUMAB (INJECTION FOR INFUSION) [Suspect]
     Indication: NON-SMALL CELL LUNG CANCER
     Dosage: INTRAVENOUS
     Route: 042
     Dates: start: 20070912
  3. GEMCITABINE [Suspect]
     Indication: NON-SMALL CELL LUNG CANCER
     Dosage: (600 MG) , INTRAVENOUS
     Route: 042
     Dates: start: 20070904, end: 20080307
  4. TAXOTERE [Suspect]
     Indication: NON-SMALL CELL LUNG CANCER
     Dosage: (40 MG)
     Dates: start: 20070904, end: 20071001
  5. PEMETREXED (PEMETREXED) (INJECTION FOR INFUSION) [Suspect]
     Indication: NON-SMALL CELL LUNG CANCER
     Dosage: (500 MG, Q3W), INTRAVENOUS
     Route: 042
     Dates: start: 20080328

REACTIONS (8)
  - ANGIOGRAM ABNORMAL [None]
  - BLINDNESS [None]
  - INTERVERTEBRAL DISC PROTRUSION [None]
  - MENISCUS LESION [None]
  - NAUSEA [None]
  - OSTEOARTHRITIS [None]
  - OSTEOCHONDROSIS [None]
  - POLYNEUROPATHY [None]
